FAERS Safety Report 18546158 (Version 1)
Quarter: 2020Q4

REPORT INFORMATION
  Report Type: Spontaneous
  Country: US (occurrence: US)
  Receive Date: 20201125
  Receipt Date: 20201125
  Transmission Date: 20210114
  Serious: Yes (Other)
  Sender: FDA-Public Use
  Company Number: US-PURDUE-USA-2020-0177400

PATIENT
  Sex: Male

DRUGS (1)
  1. HYDROCODONE BITARTRATE AND ACETAMINOPHEN [Suspect]
     Active Substance: ACETAMINOPHEN\HYDROCODONE BITARTRATE
     Indication: PRODUCT USED FOR UNKNOWN INDICATION
     Dosage: UNK
     Route: 048

REACTIONS (9)
  - Drug dependence [Unknown]
  - Tooth injury [Unknown]
  - Anxiety disorder [Unknown]
  - Circulatory collapse [Unknown]
  - Cardiovascular disorder [Unknown]
  - Mental disorder [Unknown]
  - Overdose [Unknown]
  - Respiratory disorder [Unknown]
  - Skin infection [Unknown]
